FAERS Safety Report 6811200-5 (Version None)
Quarter: 2010Q2

REPORT INFORMATION
  Report Type: 
  Country: None (occurrence: None)
  Receive Date: 20100629
  Receipt Date: 20100629
  Transmission Date: 20101027
  Serious: Yes (Other)
  Sender: FDA-Public Use
  Company Number: None

PATIENT
  Age: 81 Year
  Sex: Male
  Weight: 76 kg

DRUGS (2)
  1. MAGNEVIST [Suspect]
     Indication: SCAN WITH CONTRAST
     Dates: start: 20091229
  2. ATIVAN [Suspect]
     Indication: ANXIETY
     Dates: start: 20091229

REACTIONS (1)
  - SNEEZING [None]
